FAERS Safety Report 8492833-X (Version None)
Quarter: 2012Q3

REPORT INFORMATION
  Report Type: 
  Country: None (occurrence: None)
  Receive Date: 20120706
  Receipt Date: 20120625
  Transmission Date: 20120928
  Serious: Yes (Other)
  Sender: FDA-Public Use
  Company Number: US-BRISTOL-MYERS SQUIBB COMPANY-16710469

PATIENT
  Age: 27 Year
  Sex: Female

DRUGS (2)
  1. ABILIFY [Suspect]
     Dosage: INTERUPTED IN 5TH WEEK, RECOMMENCED IN 36.7 WEEK OF GESTATION
  2. CITALOPRAM HYDROBROMIDE [Concomitant]
     Dosage: INTERUPTED IN 5TH WEEK, RESUMED 20 MG POSTPARTUM

REACTIONS (3)
  - PREGNANCY [None]
  - LIVE BIRTH [None]
  - BREECH PRESENTATION [None]
